FAERS Safety Report 26030889 (Version 1)
Quarter: 2025Q4

REPORT INFORMATION
  Report Type: Report from Study
  Country: US (occurrence: US)
  Receive Date: 20251112
  Receipt Date: 20251112
  Transmission Date: 20260118
  Serious: Yes (Hospitalization)
  Sender: BIOGEN
  Company Number: US-BIOGEN-2025BI01326755

PATIENT
  Age: 38 Year
  Sex: Male

DRUGS (1)
  1. SKYCLARYS [Suspect]
     Active Substance: OMAVELOXOLONE
     Indication: Friedreich^s ataxia
     Dosage: EXPIRATION DATE-31 JAN 2029
     Dates: start: 20230704

REACTIONS (2)
  - Dyspnoea [Unknown]
  - Cold sweat [Unknown]
